FAERS Safety Report 9646569 (Version 2)
Quarter: 2014Q1

REPORT INFORMATION
  Report Type: Spontaneous
  Country: NO (occurrence: NO)
  Receive Date: 20131025
  Receipt Date: 20140131
  Transmission Date: 20141002
  Serious: Yes (Hospitalization, Other)
  Sender: FDA-Public Use
  Company Number: NO-ASTRAZENECA-2013SE77113

PATIENT
  Age: 921 Month
  Sex: Female

DRUGS (13)
  1. SEROQUEL [Suspect]
     Indication: DEPRESSION
     Dosage: DOSAGE UNCERTAIN
     Route: 048
     Dates: start: 201211, end: 201309
  2. VIVAL [Concomitant]
     Route: 048
  3. CIPRALEX [Concomitant]
     Route: 048
  4. CALCIGRAN FORTE [Concomitant]
     Route: 048
  5. CALCIGRAN FORTE [Concomitant]
     Dosage: INCREASED
     Route: 048
  6. MINDIAB [Concomitant]
     Route: 047
  7. ATARAX [Concomitant]
     Indication: PRURITUS
     Route: 048
  8. MOGADON [Concomitant]
     Route: 048
  9. IMOVANE [Concomitant]
  10. ZANIDIP [Concomitant]
     Route: 048
  11. ALBYL-E [Concomitant]
     Route: 048
  12. PULMICORT [Concomitant]
     Route: 055
  13. LEVAXIN [Concomitant]
     Route: 048

REACTIONS (10)
  - Self-injurious ideation [Recovered/Resolved]
  - Delirium [Recovered/Resolved]
  - Toxicity to various agents [Recovered/Resolved]
  - Hallucination, visual [Recovered/Resolved]
  - Urinary retention [Recovered/Resolved]
  - Dyskinesia [Recovered/Resolved]
  - Dyskinesia [Recovered/Resolved]
  - Dysarthria [Recovered/Resolved]
  - Pneumonia [Unknown]
  - Urinary tract infection [Unknown]
